FAERS Safety Report 5072989-1 (Version None)
Quarter: 2006Q3

REPORT INFORMATION
  Report Type: 
  Country: None (occurrence: None)
  Receive Date: 20060802
  Receipt Date: 20060720
  Transmission Date: 20061208
  Serious: Yes (Life-Threatening, Hospitalization)
  Sender: FDA-Public Use
  Company Number: 2006087255

PATIENT
  Age: 45 Year
  Sex: Female

DRUGS (7)
  1. UNASYN [Suspect]
     Indication: PYREXIA
     Dosage: 6 GRAM, INTRAVENOUS
     Route: 042
     Dates: start: 20060622, end: 20060622
  2. UNASYN [Suspect]
     Indication: WHITE BLOOD CELL COUNT INCREASED
     Dosage: 6 GRAM, INTRAVENOUS
     Route: 042
     Dates: start: 20060622, end: 20060622
  3. HEPARIN SODIUM [Concomitant]
  4. ALEVIATIN                     (PHENYTOIN, -SODIUM) (PHENYTOIN) [Concomitant]
  5. PREDNISOLONE [Concomitant]
  6. JUVELA N                  (TOCOPHEROL NICOTINATE) [Concomitant]
  7. ENALAPRIL MALEATE [Concomitant]

REACTIONS (4)
  - CONDITION AGGRAVATED [None]
  - LIVER DISORDER [None]
  - STEVENS-JOHNSON SYNDROME [None]
  - VISION BLURRED [None]
